FAERS Safety Report 6912502-4 (Version None)
Quarter: 2010Q3

REPORT INFORMATION
  Report Type: 
  Country: None (occurrence: None)
  Receive Date: 20100806
  Receipt Date: 20080618
  Transmission Date: 20110219
  Serious: No
  Sender: FDA-Public Use
  Company Number: US-PFIZER INC-2008047912

PATIENT
  Sex: Male
  Weight: 81.8 kg

DRUGS (5)
  1. DETROL LA [Suspect]
     Indication: POLLAKIURIA
     Dates: start: 20080604
  2. FINASTERIDE [Interacting]
     Indication: PROSTATOMEGALY
  3. LUTEIN [Concomitant]
  4. ACETYLSALICYLIC ACID SRT [Concomitant]
  5. ALL OTHER THERAPEUTIC PRODUCTS [Concomitant]
     Indication: MACULAR DEGENERATION

REACTIONS (2)
  - DRUG INTERACTION [None]
  - NOCTURIA [None]
